FAERS Safety Report 19086631 (Version 3)
Quarter: 2023Q2

REPORT INFORMATION
  Report Type: Spontaneous
  Country: US (occurrence: US)
  Receive Date: 20210402
  Receipt Date: 20230508
  Transmission Date: 20230722
  Serious: Yes (Hospitalization, Other)
  Sender: FDA-Public Use
  Company Number: US-PFIZER INC-2021307411

PATIENT
  Age: 9 Month
  Sex: Female

DRUGS (6)
  1. VORICONAZOLE [Interacting]
     Active Substance: VORICONAZOLE
     Indication: Antifungal treatment
     Dosage: UNK
  2. VORICONAZOLE [Interacting]
     Active Substance: VORICONAZOLE
     Indication: Pyrexia
  3. VORICONAZOLE [Interacting]
     Active Substance: VORICONAZOLE
     Indication: Pulmonary mass
  4. TACROLIMUS [Interacting]
     Active Substance: TACROLIMUS
     Indication: Prophylaxis against graft versus host disease
     Dosage: 1.2 MG, 2X/DAY(INCREASE)
  5. TACROLIMUS [Interacting]
     Active Substance: TACROLIMUS
     Dosage: 1.4 MG, 2X/DAY(INCREASE)
  6. TACROLIMUS [Interacting]
     Active Substance: TACROLIMUS
     Dosage: 2 MG, 2X/DAY(INCREASE)

REACTIONS (3)
  - Drug interaction [Recovered/Resolved]
  - Immunosuppressant drug level increased [Recovered/Resolved]
  - Toxicity to various agents [Recovered/Resolved]
